FAERS Safety Report 5564771-3 (Version None)
Quarter: 2007Q4

REPORT INFORMATION
  Report Type: 
  Country: None (occurrence: None)
  Receive Date: 20071218
  Receipt Date: 20071211
  Transmission Date: 20080405
  Serious: Yes (Other)
  Sender: FDA-Public Use
  Company Number: PL-ROCHE-536847

PATIENT
  Age: 25 Year
  Sex: Male
  Weight: 80 kg

DRUGS (3)
  1. BONIVA [Suspect]
     Indication: OSTEOPOROSIS
     Route: 048
     Dates: start: 20071101
  2. BONIVA [Suspect]
     Route: 048
     Dates: start: 20070920
  3. BONIVA [Suspect]
     Route: 048
     Dates: start: 20071001

REACTIONS (2)
  - LUNG DISORDER [None]
  - MYALGIA [None]
